FAERS Safety Report 18211781 (Version 1)
Quarter: 2020Q3

REPORT INFORMATION
  Report Type: Spontaneous
  Country: AU (occurrence: AU)
  Receive Date: 20200831
  Receipt Date: 20200831
  Transmission Date: 20201103
  Serious: Yes (Other)
  Sender: FDA-Public Use
  Company Number: AU-ADVANZ PHARMA-202008008183

PATIENT

DRUGS (6)
  1. METHOTREXATE. [Concomitant]
     Active Substance: METHOTREXATE
     Dosage: UNK
  2. TOFACITINIB [Concomitant]
     Active Substance: TOFACITINIB
     Dosage: UNK
  3. PREDNISOLONE. [Concomitant]
     Active Substance: PREDNISOLONE
     Dosage: UNK
  4. AMI?2000 [Concomitant]
     Dosage: UNK
  5. HYDROXYCHLOROQUINE [Suspect]
     Active Substance: HYDROXYCHLOROQUINE
     Indication: PRODUCT USED FOR UNKNOWN INDICATION
     Dosage: UNK (PLAQUENIL)
     Route: 065
  6. XARELTO [Concomitant]
     Active Substance: RIVAROXABAN
     Indication: PULMONARY EMBOLISM
     Dosage: UNK
     Dates: start: 201908, end: 202002

REACTIONS (5)
  - Fall [Unknown]
  - Arterial rupture [Unknown]
  - Peripheral ischaemia [Unknown]
  - Joint dislocation [Unknown]
  - Drug intolerance [Unknown]
